FAERS Safety Report 6113335-1 (Version None)
Quarter: 2009Q1

REPORT INFORMATION
  Report Type: 
  Country: None (occurrence: None)
  Receive Date: 20090312
  Receipt Date: 20000717
  Transmission Date: 20090719
  Serious: No
  Sender: FDA-Public Use
  Company Number: US-ABBOTT-08P-163-0456592-00

PATIENT

DRUGS (3)
  1. DEPAKOTE [Suspect]
     Indication: CONVULSION
  2. PROPRANOLOL [Interacting]
     Indication: MIGRAINE
  3. DESMOPRESSIN ACETATE [Interacting]
     Indication: DRUG USE FOR UNKNOWN INDICATION

REACTIONS (5)
  - DEHYDRATION [None]
  - DRUG INTERACTION [None]
  - ENCEPHALOPATHY [None]
  - ENURESIS [None]
  - VOMITING [None]
